FAERS Safety Report 17020708 (Version 1)
Quarter: 2019Q4

REPORT INFORMATION
  Report Type: Spontaneous
  Country: US (occurrence: US)
  Receive Date: 20191112
  Receipt Date: 20191112
  Transmission Date: 20200122
  Serious: Yes (Hospitalization, Other)
  Sender: FDA-Public Use
  Company Number: US-BRISTOL-MYERS SQUIBB COMPANY-BMS-2019-105985

PATIENT
  Age: 56 Year
  Sex: Male

DRUGS (1)
  1. WARFARIN SODIUM. [Suspect]
     Active Substance: WARFARIN SODIUM
     Indication: ANTIPLATELET THERAPY
     Route: 065

REACTIONS (3)
  - Retinal detachment [Unknown]
  - Vitreous haemorrhage [Unknown]
  - International normalised ratio fluctuation [Unknown]
